FAERS Safety Report 23284680 (Version 3)
Quarter: 2024Q1

REPORT INFORMATION
  Report Type: Spontaneous
  Country: EG (occurrence: EG)
  Receive Date: 20231211
  Receipt Date: 20240103
  Transmission Date: 20240410
  Serious: Yes (Other)
  Sender: FDA-Public Use
  Company Number: EG-JNJFOC-20231213870

PATIENT
  Age: 21 Year
  Sex: Male

DRUGS (1)
  1. REMICADE [Suspect]
     Active Substance: INFLIXIMAB
     Indication: Crohn^s disease
     Dosage: 2 VIALS THEN AFTER 15 DAYS HE TOOK THE SECOND 2 VIALS THEN AFTER 1MONTH HE TOOK HIS LAST 2 VIALS
     Route: 041
     Dates: start: 202310, end: 202311

REACTIONS (4)
  - Thrombosis [Unknown]
  - Neuritis [Unknown]
  - Swelling [Unknown]
  - Off label use [Unknown]

NARRATIVE: CASE EVENT DATE: 20230101
